FAERS Safety Report 5191866-9 (Version None)
Quarter: 2006Q4

REPORT INFORMATION
  Report Type: 
  Country: None (occurrence: None)
  Receive Date: 20061220
  Receipt Date: 20061201
  Transmission Date: 20070319
  Serious: Yes (Hospitalization)
  Sender: FDA-Public Use
  Company Number: 233818

PATIENT
  Sex: Female

DRUGS (2)
  1. BEVACIZUMAB (BEVACIZUMAB) PWDR + SOLVENT, INFUSION SOLN, 100MG [Suspect]
     Indication: COLON CANCER
     Dates: start: 20061026
  2. XELODA [Suspect]
     Indication: COLON CANCER
     Dosage: 1650 MG, ORAL
     Route: 048
     Dates: start: 20061026, end: 20061116

REACTIONS (1)
  - LACTIC ACIDOSIS [None]
